FAERS Safety Report 7632877-0 (Version None)
Quarter: 2011Q3

REPORT INFORMATION
  Report Type: 
  Country: None (occurrence: None)
  Receive Date: 20110725
  Receipt Date: 20110712
  Transmission Date: 20111222
  Serious: Yes (Hospitalization)
  Sender: FDA-Public Use
  Company Number: PHHY2011US63971

PATIENT
  Sex: Female

DRUGS (2)
  1. RECLAST [Suspect]
     Indication: OSTEOPOROSIS POSTMENOPAUSAL
     Dosage: 5 MG,
     Route: 042
     Dates: start: 20101215
  2. PREDNISONE [Concomitant]
     Dosage: UNK UKN, UNK

REACTIONS (5)
  - FRACTURE [None]
  - PAIN [None]
  - STRESS FRACTURE [None]
  - FALL [None]
  - PAIN IN EXTREMITY [None]
